FAERS Safety Report 26085258 (Version 1)
Quarter: 2025Q4

REPORT INFORMATION
  Report Type: Report from Study
  Country: US (occurrence: US)
  Receive Date: 20251125
  Receipt Date: 20251125
  Transmission Date: 20260118
  Serious: Yes (Other)
  Sender: ALEXION PHARMACEUTICALS
  Company Number: US-AstraZeneca-CH-00997413A

PATIENT
  Sex: Male

DRUGS (1)
  1. CALQUENCE [Suspect]
     Active Substance: ACALABRUTINIB
     Indication: Chronic lymphocytic leukaemia

REACTIONS (6)
  - Cardiac disorder [Unknown]
  - Atrial fibrillation [Unknown]
  - Pain [Unknown]
  - Gait disturbance [Unknown]
  - Headache [Unknown]
  - Illness [Unknown]
